FAERS Safety Report 7989611-4 (Version None)
Quarter: 2011Q4

REPORT INFORMATION
  Report Type: 
  Country: None (occurrence: None)
  Receive Date: 20111219
  Receipt Date: 20111213
  Transmission Date: 20120403
  Serious: Yes (Other)
  Sender: FDA-Public Use
  Company Number: US-JNJFOC-20111206473

PATIENT
  Sex: Female
  Weight: 48.99 kg

DRUGS (2)
  1. CONCERTA [Suspect]
     Indication: ATTENTION DEFICIT/HYPERACTIVITY DISORDER
     Route: 048
     Dates: start: 20100101
  2. SYMBICORT [Suspect]
     Indication: ASTHMA
     Route: 048
     Dates: start: 20111212

REACTIONS (1)
  - ASTHMA [None]
